FAERS Safety Report 9684544 (Version 3)
Quarter: 2014Q1

REPORT INFORMATION
  Report Type: Spontaneous
  Country: DE (occurrence: None)
  Receive Date: 20131108
  Receipt Date: 20140109
  Transmission Date: 20141002
  Serious: Yes (Hospitalization)
  Sender: FDA-Public Use
  Company Number: 7246873

PATIENT
  Age: 74 Year
  Sex: Female

DRUGS (2)
  1. EUTHYROX [Suspect]
     Indication: HYPOTHYROIDISM
     Route: 048
     Dates: start: 2004, end: 20130919
  2. SIMVASTATIN (SIMVASTATIN) (SIMVASTATIN) [Concomitant]

REACTIONS (11)
  - Abdominal pain [None]
  - Hypoaesthesia [None]
  - Palpitations [None]
  - Insomnia [None]
  - Night sweats [None]
  - Drug withdrawal syndrome [None]
  - Lactose intolerance [None]
  - Drug dose omission [None]
  - Hypoaesthesia [None]
  - Drug interaction [None]
  - Gastrointestinal pain [None]
